FAERS Safety Report 4840963-3 (Version None)
Quarter: 2005Q4

REPORT INFORMATION
  Report Type: 
  Country: None (occurrence: None)
  Receive Date: 20051130
  Receipt Date: 20050809
  Transmission Date: 20060501
  Serious: No
  Sender: FDA-Public Use
  Company Number: US-BRISTOL-MYERS SQUIBB COMPANY-13067962

PATIENT
  Age: 47 Year
  Sex: Male
  Weight: 64 kg

DRUGS (3)
  1. ABILIFY [Suspect]
     Indication: MENTAL DISORDER
     Dosage: PATIENT HAS BEEN TAKING ARIPIPRAZOLE SINCE THE PREVIOUS WINTER
     Route: 048
  2. DEPAKOTE [Concomitant]
  3. BENZTROPINE MESYLATE [Concomitant]

REACTIONS (1)
  - WEIGHT DECREASED [None]
